FAERS Safety Report 9743919 (Version 1)
Quarter: 2013Q4

REPORT INFORMATION
  Report Type: Report from Study
  Country: FR (occurrence: FR)
  Receive Date: 20131210
  Receipt Date: 20131210
  Transmission Date: 20140711
  Serious: Yes (Other)
  Sender: FDA-Public Use
  Company Number: PHHY2013FR143754

PATIENT
  Age: 71 Year
  Sex: Female

DRUGS (5)
  1. ACLASTA/ZOLEDRONATE [Suspect]
     Indication: OSTEOPOROSIS
     Dosage: UNK UKN, UNK
     Route: 042
     Dates: start: 20120422
  2. MOPRAL [Concomitant]
     Dosage: UNK UKN, UNK
     Dates: start: 2002
  3. VASTAREL [Concomitant]
     Dosage: UNK UKN, UNK
     Dates: start: 2002
  4. CRESTOR [Concomitant]
     Dosage: UNK UKN, UNK
     Dates: start: 2002
  5. VITAMIN D3 [Concomitant]
     Dosage: UNK UKN, UNK

REACTIONS (1)
  - Enterocolitis haemorrhagic [Unknown]
